FAERS Safety Report 10616419 (Version 1)
Quarter: 2014Q4

REPORT INFORMATION
  Report Type: Spontaneous
  Country: GR (occurrence: GR)
  Receive Date: 20141201
  Receipt Date: 20141201
  Transmission Date: 20150529
  Serious: Yes (Hospitalization)
  Sender: FDA-Public Use
  Company Number: GR-TEVA-525910ISR

PATIENT
  Age: 65 Year
  Sex: Male

DRUGS (1)
  1. METHOTREXATE [Suspect]
     Active Substance: METHOTREXATE
     Indication: PSORIATIC ARTHROPATHY
     Dosage: 15 MG/WEEK, TREATMENT FOR APPROXIMATELY 2 YEARS.
     Route: 065

REACTIONS (2)
  - Visceral leishmaniasis [Recovered/Resolved]
  - Histiocytosis haematophagic [Recovered/Resolved]
